FAERS Safety Report 17454145 (Version 5)
Quarter: 2020Q3

REPORT INFORMATION
  Report Type: Spontaneous
  Country: US (occurrence: US)
  Receive Date: 20200224
  Receipt Date: 20200721
  Transmission Date: 20201102
  Serious: No
  Sender: FDA-Public Use
  Company Number: US-AMGEN INC.-USASP2020030510

PATIENT
  Sex: Female

DRUGS (2)
  1. AIMOVIG [Suspect]
     Active Substance: ERENUMAB-AOOE
     Indication: MIGRAINE
     Dosage: UNK
     Route: 065
  2. MIRALAX [Concomitant]
     Active Substance: POLYETHYLENE GLYCOL 3350
     Dosage: UNK

REACTIONS (9)
  - Nausea [Recovered/Resolved]
  - Abdominal pain [Unknown]
  - Accidental exposure to product [Unknown]
  - Muscle twitching [Unknown]
  - Abdominal distension [Unknown]
  - Migraine [Not Recovered/Not Resolved]
  - Breast tenderness [Unknown]
  - Mood altered [Unknown]
  - Device malfunction [Unknown]

NARRATIVE: CASE EVENT DATE: 202006
